FAERS Safety Report 10136649 (Version 1)
Quarter: 2014Q2

REPORT INFORMATION
  Report Type: Spontaneous
  Country: US (occurrence: None)
  Receive Date: 20140425
  Receipt Date: 20140425
  Transmission Date: 20141212
  Serious: Yes (Other)
  Sender: FDA-Public Use
  Company Number: UTC-047256

PATIENT
  Age: 60 Year
  Sex: Female
  Weight: 77.11 kg

DRUGS (4)
  1. TYVASO [Suspect]
     Indication: COR PULMONALE CHRONIC
     Dosage: 18 TO 54 MCG (4 IN 1 D)
     Route: 055
     Dates: start: 20120125
  2. COUMADIN (WARFARIN SODIUM) (UNKNOWN) [Concomitant]
  3. TRACLEER (BOSENTAN) (UNKNOWN) [Concomitant]
  4. ADCIRCA (TADALAFIL) (UNKNOWN) [Concomitant]

REACTIONS (4)
  - Oedema [None]
  - Weight increased [None]
  - Dysstasia [None]
  - Skin tightness [None]
